FAERS Safety Report 6193264-8 (Version None)
Quarter: 2009Q2

REPORT INFORMATION
  Report Type: 
  Country: None (occurrence: None)
  Receive Date: 20090518
  Receipt Date: 20090511
  Transmission Date: 20091009
  Serious: Yes (Other)
  Sender: FDA-Public Use
  Company Number: B0566040A

PATIENT
  Age: 46 Year
  Sex: Male

DRUGS (1)
  1. PAROXETINE HCL [Suspect]
     Indication: DEPRESSION
     Route: 048
     Dates: start: 20090108

REACTIONS (3)
  - HYPERHIDROSIS [None]
  - SUICIDAL IDEATION [None]
  - THIRST [None]
